FAERS Safety Report 8839639 (Version 3)
Quarter: 2013Q1

REPORT INFORMATION
  Report Type: Report from Study
  Country: US (occurrence: US)
  Receive Date: 20121015
  Receipt Date: 20130325
  Transmission Date: 20140127
  Serious: Yes (Hospitalization, Other)
  Sender: FDA-Public Use
  Company Number: US-JNJFOC-20121006091

PATIENT
  Age: 53 None
  Sex: Male
  Weight: 81 kg

DRUGS (16)
  1. REMICADE [Suspect]
     Indication: CROHN^S DISEASE
     Route: 042
     Dates: start: 20120123
  2. REMICADE [Suspect]
     Indication: CROHN^S DISEASE
     Route: 042
     Dates: start: 20120105
  3. REMICADE [Suspect]
     Indication: CROHN^S DISEASE
     Route: 042
     Dates: start: 20120221, end: 201203
  4. DIOVAN [Concomitant]
     Indication: HYPERTENSION
     Dates: start: 2000, end: 201205
  5. ZYRTEC [Concomitant]
     Route: 065
  6. ONDANSETRON [Concomitant]
     Route: 065
  7. PREDNISONE [Concomitant]
     Route: 065
     Dates: start: 20120221
  8. PREDNISONE [Concomitant]
     Dosage: ORAL
     Route: 065
  9. PREDNISONE [Concomitant]
     Route: 065
     Dates: start: 20120123
  10. PREDNISONE [Concomitant]
     Route: 065
     Dates: start: 20120105
  11. HYDROCODONE [Concomitant]
     Route: 065
  12. DICYCLOMINE [Concomitant]
     Route: 065
  13. PEG 3350 AND ELECTROLYTES [Concomitant]
     Dosage: AS DIRECTED FOR PROCEDURE
     Route: 065
  14. CLARITIN [Concomitant]
     Indication: PREMEDICATION
     Route: 048
     Dates: start: 20120105
  15. TYLENOL [Concomitant]
     Indication: PREMEDICATION
     Route: 048
     Dates: start: 20120105
  16. VICODIN [Concomitant]
     Route: 065

REACTIONS (16)
  - Large intestinal stenosis [Unknown]
  - Crohn^s disease [Unknown]
  - Drug ineffective [Unknown]
  - Perirectal abscess [Unknown]
  - Fistula [Unknown]
  - Weight decreased [Unknown]
  - Intestinal ulcer [Unknown]
  - Anorectal varices [Unknown]
  - Intestinal polyp [Unknown]
  - Pallor [Unknown]
  - Chills [Recovered/Resolved]
  - Contusion [Unknown]
  - Oedema [Unknown]
  - Pain [Unknown]
  - Dysphonia [Unknown]
  - Fatigue [Unknown]
